FAERS Safety Report 10577647 (Version 1)
Quarter: 2014Q4

REPORT INFORMATION
  Report Type: Spontaneous
  Country: US (occurrence: US)
  Receive Date: 20141111
  Receipt Date: 20141111
  Transmission Date: 20150529
  Serious: Yes (Other)
  Sender: FDA-Public Use
  Company Number: US-ABBVIE-14P-163-1305380-00

PATIENT
  Sex: Male

DRUGS (2)
  1. DEPO-TESTOSTERONE [Suspect]
     Active Substance: TESTOSTERONE CYPIONATE
     Indication: BLOOD TESTOSTERONE DECREASED
     Dosage: AS PRESCRIBED
     Route: 065
     Dates: start: 2013
  2. ANDROGEL [Suspect]
     Active Substance: TESTOSTERONE
     Indication: BLOOD TESTOSTERONE DECREASED
     Dosage: AS PRESCRIBED
     Route: 065
     Dates: start: 2013

REACTIONS (8)
  - Pain [Unknown]
  - Transient ischaemic attack [Unknown]
  - Lung disorder [Unknown]
  - Dyspnoea [Unknown]
  - Myocardial infarction [Unknown]
  - Economic problem [Unknown]
  - Injury [Unknown]
  - Emotional disorder [Unknown]
